FAERS Safety Report 9557642 (Version 1)
Quarter: 2013Q3

REPORT INFORMATION
  Report Type: Spontaneous
  Country: US (occurrence: None)
  Receive Date: 20130724
  Receipt Date: 20130724
  Transmission Date: 20140515
  Serious: Yes (Other)
  Sender: FDA-Public Use
  Company Number: PHEH2012US023349

PATIENT
  Age: 63 Year
  Sex: Female
  Weight: 138 kg

DRUGS (8)
  1. GLEEVEC [Suspect]
     Indication: ACUTE MYELOID LEUKAEMIA
     Route: 048
     Dates: start: 20121004, end: 20121113
  2. CENTRUM (MINERALS NOS, VITAMINS NOS) [Concomitant]
  3. ATENOLOL (ATENOLOL) [Concomitant]
  4. PRILOSEC [Concomitant]
  5. LEVOTHYROXIN (LEVOTHYROXINE SODIUM) [Concomitant]
  6. ZYRTEC (CETIRIZINE HYDROCHLORIDE) [Concomitant]
  7. DIFLUCAN (FLUCONAZOLE) [Concomitant]
  8. VALTREX (VALACICLOVIR HYDROCHLORIDE) [Concomitant]

REACTIONS (3)
  - Renal failure [None]
  - Oedema peripheral [None]
  - Face oedema [None]
